FAERS Safety Report 7282050-3 (Version None)
Quarter: 2011Q1

REPORT INFORMATION
  Report Type: 
  Country: None (occurrence: None)
  Receive Date: 20110208
  Receipt Date: 20110121
  Transmission Date: 20110831
  Serious: Yes (Other)
  Sender: FDA-Public Use
  Company Number: PHHY2011PL04963

PATIENT
  Age: 14 Year
  Sex: Male

DRUGS (4)
  1. DEXAMETHASONE [Suspect]
     Dosage: 1.5 MG, QD FOR 2 MONTHS
  2. DEXAMETHASONE [Suspect]
     Indication: ENCEPHALOMYELITIS
     Dosage: 2 MG, QD
     Dates: start: 20080901
  3. DEXAMETHASONE [Suspect]
     Dosage: 1 MG, QD, FOR THE NEXT 3 MONTHS
  4. SOLU-MEDROL [Suspect]
     Indication: ENCEPHALOMYELITIS
     Dosage: 1 G, EVERY SECOND DAY, 5 X 1G
     Route: 042
     Dates: start: 20080901

REACTIONS (3)
  - SKIN STRIAE [None]
  - WEIGHT INCREASED [None]
  - DEPRESSION [None]
